FAERS Safety Report 4804111-8 (Version None)
Quarter: 2005Q4

REPORT INFORMATION
  Report Type: 
  Country: None (occurrence: None)
  Receive Date: 20051014
  Receipt Date: 20051009
  Transmission Date: 20060501
  Serious: Yes (Other)
  Sender: FDA-Public Use
  Company Number: 2005-10-0430

PATIENT
  Age: 24 Year
  Sex: Female

DRUGS (3)
  1. CLARITIN ALLERGY 24 HR 10MG (LORATADINE) [Suspect]
     Indication: INTENTIONAL SELF-INJURY
     Dosage: UNKNOWN ORAL
     Route: 048
  2. TYLENOL SINUS MEDICATION TABLETS [Suspect]
     Indication: INTENTIONAL SELF-INJURY
     Dosage: UNKNOWN ORAL
     Route: 048
  3. NYQUIL SYRUP [Suspect]
     Indication: INTENTIONAL SELF-INJURY
     Dosage: UNKNOWN ORAL
     Route: 048

REACTIONS (1)
  - INTENTIONAL SELF-INJURY [None]
